FAERS Safety Report 7749830-9 (Version None)
Quarter: 2011Q3

REPORT INFORMATION
  Report Type: 
  Country: None (occurrence: None)
  Receive Date: 20110908
  Receipt Date: 20110826
  Transmission Date: 20111222
  Serious: Yes (Other)
  Sender: FDA-Public Use
  Company Number: 2011SP040619

PATIENT
  Age: 40 Year
  Sex: Female

DRUGS (1)
  1. DULERA ORAL INHALATION [Suspect]
     Indication: ASTHMA
     Dosage: 2 DF;BID;INH
     Route: 055
     Dates: start: 20110801, end: 20110801

REACTIONS (1)
  - ANGIOEDEMA [None]
